FAERS Safety Report 18163106 (Version 4)
Quarter: 2020Q3

REPORT INFORMATION
  Report Type: Spontaneous
  Country: IT (occurrence: IT)
  Receive Date: 20200818
  Receipt Date: 20200922
  Transmission Date: 20201103
  Serious: Yes (Death, Life-Threatening, Hospitalization, Other)
  Sender: FDA-Public Use
  Company Number: IT-ACCORD-195812

PATIENT
  Age: 49 Year
  Sex: Female
  Weight: 50 kg

DRUGS (5)
  1. MYCOPHENOLIC ACID. [Suspect]
     Active Substance: MYCOPHENOLIC ACID
     Indication: IMMUNOSUPPRESSANT DRUG THERAPY
     Dosage: 500 MG X 8 HOUR (500 MG TID)
     Route: 048
     Dates: start: 20180408, end: 20180519
  2. METHYLPREDNISOLONE. [Suspect]
     Active Substance: METHYLPREDNISOLONE
     Indication: ANTIPHOSPHOLIPID SYNDROME
     Dates: start: 2018, end: 2018
  3. PREDNISONE. [Suspect]
     Active Substance: PREDNISONE
     Indication: IMMUNOSUPPRESSANT DRUG THERAPY
     Dosage: ON EVEN DAYS
     Route: 048
     Dates: start: 20180519
  4. PREDNISONE. [Suspect]
     Active Substance: PREDNISONE
     Indication: ANTIPHOSPHOLIPID SYNDROME
     Dosage: ON ODDS DAYS
     Route: 048
     Dates: start: 20180301
  5. MYCOPHENOLATE MOFETIL. [Suspect]
     Active Substance: MYCOPHENOLATE MOFETIL
     Indication: SYSTEMIC LUPUS ERYTHEMATOSUS

REACTIONS (10)
  - Disseminated intravascular coagulation [Unknown]
  - Acute kidney injury [Fatal]
  - Hyperglycaemia [Fatal]
  - Multiple organ dysfunction syndrome [Fatal]
  - Viral pharyngitis [Fatal]
  - Respiratory distress [Fatal]
  - Hypotension [Unknown]
  - Hepatic haemorrhage [Fatal]
  - Varicella zoster virus infection [Fatal]
  - Hepatic necrosis [Fatal]

NARRATIVE: CASE EVENT DATE: 2018
